FAERS Safety Report 13438632 (Version 2)
Quarter: 2017Q2

REPORT INFORMATION
  Report Type: Spontaneous
  Country: BR (occurrence: BR)
  Receive Date: 20170413
  Receipt Date: 20170629
  Transmission Date: 20170830
  Serious: Yes (Other)
  Sender: FDA-Public Use
  Company Number: BR-JNJFOC-20151225665

PATIENT

DRUGS (29)
  1. PAROXETINE. [Interacting]
     Active Substance: PAROXETINE
     Indication: PRODUCT USED FOR UNKNOWN INDICATION
     Route: 065
  2. CARBAMAZEPINE. [Suspect]
     Active Substance: CARBAMAZEPINE
     Indication: PRODUCT USED FOR UNKNOWN INDICATION
     Route: 065
  3. LEVOMEPROMAZINE [Suspect]
     Active Substance: LEVOMEPROMAZINE
     Indication: MENTAL DISORDER
     Route: 065
  4. LEVOMEPROMAZINE [Suspect]
     Active Substance: LEVOMEPROMAZINE
     Indication: ABNORMAL BEHAVIOUR
     Route: 065
  5. RISPERIDONE. [Suspect]
     Active Substance: RISPERIDONE
     Indication: SPEECH DISORDER
     Dosage: DOSE OF RISPERIDONE 0.5-2 MG/DAY. SOME ADOLESCENTS WERE TAKING HIGHER DOSES 2-8 MG/DAY.
     Route: 048
  6. RISPERIDONE. [Suspect]
     Active Substance: RISPERIDONE
     Indication: INTELLECTUAL DISABILITY
     Dosage: DOSE OF RISPERIDONE 0.5-2 MG/DAY. SOME ADOLESCENTS WERE TAKING HIGHER DOSES 2-8 MG/DAY.
     Route: 048
  7. RISPERIDONE. [Suspect]
     Active Substance: RISPERIDONE
     Indication: EMOTIONAL DISORDER
     Dosage: DOSE OF RISPERIDONE 0.5-2 MG/DAY. SOME ADOLESCENTS WERE TAKING HIGHER DOSES 2-8 MG/DAY.
     Route: 048
  8. BIPERIDEN [Suspect]
     Active Substance: BIPERIDEN
     Indication: MENTAL DISORDER
     Route: 065
  9. LITHIUM CARBONATE. [Suspect]
     Active Substance: LITHIUM CARBONATE
     Indication: ABNORMAL BEHAVIOUR
     Route: 065
  10. RISPERIDONE. [Suspect]
     Active Substance: RISPERIDONE
     Indication: AUTISM SPECTRUM DISORDER
     Dosage: DOSE OF RISPERIDONE 0.5-2 MG/DAY. SOME ADOLESCENTS WERE TAKING HIGHER DOSES 2-8 MG/DAY.
     Route: 048
  11. PROMETHAZINE [Suspect]
     Active Substance: PROMETHAZINE\PROMETHAZINE HYDROCHLORIDE
     Indication: MENTAL DISORDER
     Route: 065
  12. IMIPRAMINE [Interacting]
     Active Substance: IMIPRAMINE
     Indication: PRODUCT USED FOR UNKNOWN INDICATION
     Route: 065
  13. CLOMIPRAMINE [Interacting]
     Active Substance: CLOMIPRAMINE
     Indication: PRODUCT USED FOR UNKNOWN INDICATION
     Route: 065
  14. CLONIDINE. [Suspect]
     Active Substance: CLONIDINE
     Indication: ABNORMAL BEHAVIOUR
     Route: 065
  15. CLONIDINE. [Suspect]
     Active Substance: CLONIDINE
     Indication: MENTAL DISORDER
     Route: 065
  16. RISPERIDONE. [Suspect]
     Active Substance: RISPERIDONE
     Indication: SCHIZOPHRENIA
     Dosage: DOSE OF RISPERIDONE 0.5-2 MG/DAY. SOME ADOLESCENTS WERE TAKING HIGHER DOSES 2-8 MG/DAY.
     Route: 048
  17. FLUOXETINE [Interacting]
     Active Substance: FLUOXETINE HYDROCHLORIDE
     Indication: PRODUCT USED FOR UNKNOWN INDICATION
     Route: 065
  18. BIPERIDEN [Suspect]
     Active Substance: BIPERIDEN
     Indication: ABNORMAL BEHAVIOUR
     Route: 065
  19. RISPERIDONE. [Suspect]
     Active Substance: RISPERIDONE
     Indication: DEPRESSION
     Dosage: DOSE OF RISPERIDONE 0.5-2 MG/DAY. SOME ADOLESCENTS WERE TAKING HIGHER DOSES 2-8 MG/DAY.
     Route: 048
  20. RISPERIDONE. [Suspect]
     Active Substance: RISPERIDONE
     Indication: ABNORMAL BEHAVIOUR
     Dosage: DOSE OF RISPERIDONE 0.5-2 MG/DAY. SOME ADOLESCENTS WERE TAKING HIGHER DOSES 2-8 MG/DAY.
     Route: 048
  21. PROMETHAZINE [Suspect]
     Active Substance: PROMETHAZINE\PROMETHAZINE HYDROCHLORIDE
     Indication: ABNORMAL BEHAVIOUR
     Route: 065
  22. SERTRALINE [Interacting]
     Active Substance: SERTRALINE HYDROCHLORIDE
     Indication: PRODUCT USED FOR UNKNOWN INDICATION
     Route: 065
  23. PERICIAZINE [Suspect]
     Active Substance: PERICIAZINE
     Indication: MENTAL DISORDER
     Route: 065
  24. RISPERIDONE. [Suspect]
     Active Substance: RISPERIDONE
     Indication: CONDUCT DISORDER
     Dosage: DOSE OF RISPERIDONE 0.5-2 MG/DAY. SOME ADOLESCENTS WERE TAKING HIGHER DOSES 2-8 MG/DAY.
     Route: 048
  25. RISPERIDONE. [Suspect]
     Active Substance: RISPERIDONE
     Indication: MENTAL DISORDER
     Dosage: DOSE OF RISPERIDONE 0.5-2 MG/DAY. SOME ADOLESCENTS WERE TAKING HIGHER DOSES 2-8 MG/DAY.
     Route: 048
  26. CIMETIDINE [Interacting]
     Active Substance: CIMETIDINE
     Indication: PRODUCT USED FOR UNKNOWN INDICATION
     Route: 065
  27. PERICIAZINE [Suspect]
     Active Substance: PERICIAZINE
     Indication: ABNORMAL BEHAVIOUR
     Route: 065
  28. LITHIUM CARBONATE. [Suspect]
     Active Substance: LITHIUM CARBONATE
     Indication: MENTAL DISORDER
     Route: 065
  29. RISPERIDONE. [Suspect]
     Active Substance: RISPERIDONE
     Indication: ATTENTION DEFICIT/HYPERACTIVITY DISORDER
     Dosage: DOSE OF RISPERIDONE 0.5-2 MG/DAY. SOME ADOLESCENTS WERE TAKING HIGHER DOSES 2-8 MG/DAY.
     Route: 048

REACTIONS (17)
  - Leptin level increased [Unknown]
  - Product use in unapproved indication [Unknown]
  - Off label use [Unknown]
  - Overweight [Unknown]
  - Hypertriglyceridaemia [Unknown]
  - Obesity [Unknown]
  - Blood pressure abnormal [Unknown]
  - Metabolic syndrome [Unknown]
  - Hypocholesterolaemia [Unknown]
  - Hyperprolactinaemia [Unknown]
  - Hypertension [Unknown]
  - Drug level increased [Unknown]
  - Blood cholesterol increased [Unknown]
  - Insulin resistance test [Unknown]
  - Incorrect dose administered [Unknown]
  - Drug interaction [Unknown]
  - Waist circumference increased [Unknown]
